FAERS Safety Report 17919918 (Version 3)
Quarter: 2020Q3

REPORT INFORMATION
  Report Type: Spontaneous
  Country: ES (occurrence: ES)
  Receive Date: 20200620
  Receipt Date: 20200714
  Transmission Date: 20201103
  Serious: Yes (Other)
  Sender: FDA-Public Use
  Company Number: ES-AUROBINDO-AUR-APL-2020-029674

PATIENT
  Age: 12 Year
  Sex: Female

DRUGS (11)
  1. INTERFERON ALFA?2B [Suspect]
     Active Substance: INTERFERON ALFA-2B
     Indication: RESPIRATORY PAPILLOMA
     Dosage: 4,5 MILLION OF UNITS, ALTERNATE DAYS
     Route: 058
     Dates: start: 200112
  2. GARDASIL [Suspect]
     Active Substance: HUMAN PAPILLOMAVIRUS QUADRIVALENT (TYPES 6, 11, 16, AND 18) VACCINE, RECOMBINANT
     Indication: RESPIRATORY PAPILLOMA
     Dosage: UNK
     Route: 065
     Dates: start: 200707, end: 200707
  3. INTERFERON ALFA?2B [Suspect]
     Active Substance: INTERFERON ALFA-2B
     Indication: LARYNGEAL PAPILLOMA
     Dosage: UNK
     Route: 065
  4. CELECOXIB. [Suspect]
     Active Substance: CELECOXIB
     Indication: LARYNGEAL PAPILLOMA
     Dosage: 200 MILLIGRAM, ONCE A DAY
     Route: 042
  5. CIDOFOVIR. [Suspect]
     Active Substance: CIDOFOVIR
     Indication: RESPIRATORY PAPILLOMA
     Dosage: UNK
     Route: 065
  6. ERLOTINIB [Suspect]
     Active Substance: ERLOTINIB
     Indication: RESPIRATORY PAPILLOMA
     Dosage: UNK
     Route: 065
  7. ERLOTINIB HYDROCHLORIDE. [Suspect]
     Active Substance: ERLOTINIB HYDROCHLORIDE
     Indication: LARYNGEAL PAPILLOMA
     Dosage: UNK
     Route: 065
  8. GARDASIL [Suspect]
     Active Substance: HUMAN PAPILLOMAVIRUS QUADRIVALENT (TYPES 6, 11, 16, AND 18) VACCINE, RECOMBINANT
     Indication: LARYNGEAL PAPILLOMA
     Dosage: UNK
     Route: 065
  9. CELECOXIB. [Suspect]
     Active Substance: CELECOXIB
     Indication: RESPIRATORY PAPILLOMA
  10. CIDOFOVIR. [Suspect]
     Active Substance: CIDOFOVIR
     Indication: LARYNGEAL PAPILLOMA
     Dosage: UNK
     Route: 065
  11. ERLOTINIB HYDROCHLORIDE. [Suspect]
     Active Substance: ERLOTINIB HYDROCHLORIDE
     Indication: RESPIRATORY PAPILLOMA
     Dosage: 150 MILLIGRAM, ONCE A DAY
     Route: 065

REACTIONS (5)
  - Respiratory papilloma [Recovering/Resolving]
  - Laryngeal papilloma [Recovering/Resolving]
  - Off label use [Unknown]
  - Papilloma viral infection [Recovering/Resolving]
  - Therapeutic response decreased [Unknown]

NARRATIVE: CASE EVENT DATE: 200707
